FAERS Safety Report 15895085 (Version 2)
Quarter: 2023Q2

REPORT INFORMATION
  Report Type: Spontaneous
  Country: HU (occurrence: HU)
  Receive Date: 20190131
  Receipt Date: 20230518
  Transmission Date: 20230721
  Serious: Yes (Other)
  Sender: FDA-Public Use
  Company Number: PHHY2019HU018258

PATIENT
  Sex: Male

DRUGS (5)
  1. BORTEZOMIB [Suspect]
     Active Substance: BORTEZOMIB
     Indication: Plasma cell leukaemia
     Dosage: UNK
     Route: 065
  2. DEXAMETHASONE [Suspect]
     Active Substance: DEXAMETHASONE
     Indication: Plasma cell leukaemia
     Dosage: UNK
     Route: 065
  3. CLARITHROMYCIN [Suspect]
     Active Substance: CLARITHROMYCIN
     Indication: Plasma cell leukaemia
     Dosage: 500 MG, BID
     Route: 065
  4. BENDAMUSTINE [Suspect]
     Active Substance: BENDAMUSTINE
     Indication: Plasma cell leukaemia
     Dosage: UNK
     Route: 065
  5. VENETOCLAX [Suspect]
     Active Substance: VENETOCLAX
     Indication: Plasma cell leukaemia
     Dosage: 400 MG, QD
     Route: 048

REACTIONS (4)
  - Tumour lysis syndrome [Recovering/Resolving]
  - Hyperkalaemia [Recovering/Resolving]
  - Hyperuricaemia [Recovering/Resolving]
  - Hyperphosphataemia [Recovering/Resolving]
